FAERS Safety Report 8277936-7 (Version None)
Quarter: 2012Q2

REPORT INFORMATION
  Report Type: 
  Country: None (occurrence: None)
  Receive Date: 20120412
  Receipt Date: 20120328
  Transmission Date: 20120825
  Serious: Yes (Congenital Anomaly)
  Sender: FDA-Public Use
  Company Number: BR-VALEANT-2012VX001543

PATIENT
  Sex: Female

DRUGS (2)
  1. CITALOPRAM HYDROBROMIDE [Concomitant]
     Indication: ANXIETY
     Route: 065
  2. TIMOLOL MALEATE [Suspect]
     Route: 065
     Dates: start: 20111018

REACTIONS (9)
  - HAEMANGIOMA CONGENITAL [None]
  - MATERNAL DRUGS AFFECTING FOETUS [None]
  - DIARRHOEA [None]
  - ABDOMINAL PAIN [None]
  - IRRITABILITY [None]
  - INFANTILE COLIC [None]
  - HAEMANGIOMA [None]
  - EXPOSURE DURING BREAST FEEDING [None]
  - DIARRHOEA NEONATAL [None]
